FAERS Safety Report 14620490 (Version 1)
Quarter: 2018Q1

REPORT INFORMATION
  Report Type: Report from Study
  Country: None (occurrence: CH)
  Receive Date: 20180309
  Receipt Date: 20180309
  Transmission Date: 20180509
  Serious: Yes (Death, Life-Threatening, Hospitalization, Other)
  Sender: FDA-Public Use
  Company Number: CH-ABBVIE-18P-151-2228371-00

PATIENT
  Age: 72 Year
  Sex: Male
  Weight: 66 kg

DRUGS (7)
  1. VENETOCLAX. [Suspect]
     Active Substance: VENETOCLAX
     Indication: CHRONIC LYMPHOCYTIC LEUKAEMIA
     Route: 048
     Dates: start: 20170711, end: 20171206
  2. SIMVASTATIN. [Concomitant]
     Active Substance: SIMVASTATIN
     Indication: HYPERLIPIDAEMIA
     Dosage: FOR YEARS
     Route: 048
     Dates: end: 20171217
  3. PANTOPRAZOL [Concomitant]
     Active Substance: PANTOPRAZOLE SODIUM
     Indication: GASTROOESOPHAGEAL REFLUX DISEASE
     Dosage: FOR YEARS
     Route: 048
     Dates: end: 20171217
  4. TORASEMID [Concomitant]
     Active Substance: TORSEMIDE
     Indication: ASCITES
     Dosage: FOR YEARS
     Route: 048
     Dates: end: 20171217
  5. CARVEDILOL. [Concomitant]
     Active Substance: CARVEDILOL
     Indication: CORONARY ARTERY DISEASE
     Dosage: FOR YEARS
     Route: 048
     Dates: end: 20171217
  6. ASPIRIN. [Concomitant]
     Active Substance: ASPIRIN
     Indication: CORONARY ARTERY DISEASE
     Dosage: FOR YEARS
     Route: 048
     Dates: end: 20171217
  7. CORTIMENT [Concomitant]
     Indication: COLITIS
     Dosage: FOR YEARS
     Route: 048
     Dates: end: 20171217

REACTIONS (9)
  - Haematology test abnormal [Unknown]
  - Laboratory test abnormal [Unknown]
  - Ascites [Not Recovered/Not Resolved]
  - Pneumonia [Recovered/Resolved]
  - Soft tissue infection [Recovered/Resolved]
  - Disease progression [Fatal]
  - Pneumonia [Fatal]
  - Ascites [Unknown]
  - Richter^s syndrome [Fatal]

NARRATIVE: CASE EVENT DATE: 20171124
